FAERS Safety Report 5576771-8 (Version None)
Quarter: 2007Q4

REPORT INFORMATION
  Report Type: 
  Country: None (occurrence: None)
  Receive Date: 20071228
  Receipt Date: 20071104
  Transmission Date: 20080405
  Serious: Yes (Death)
  Sender: FDA-Public Use
  Company Number: US-PURDUE-USA_2007_0030791

PATIENT
  Age: 68 Year
  Sex: Male

DRUGS (2)
  1. OXYCONTIN [Suspect]
     Indication: COMPRESSION FRACTURE
     Dosage: 40 MG, UNK
     Dates: start: 20011016, end: 20010508
  2. VICODIN [Concomitant]
     Dosage: 15 MG, Q4H

REACTIONS (5)
  - COMPLETED SUICIDE [None]
  - DEPRESSION [None]
  - DYSPNOEA [None]
  - GUN SHOT WOUND [None]
  - MANIA [None]
